FAERS Safety Report 5405634-3 (Version None)
Quarter: 2007Q3

REPORT INFORMATION
  Report Type: 
  Country: None (occurrence: None)
  Receive Date: 20070806
  Receipt Date: 20070728
  Transmission Date: 20080115
  Serious: Yes (Hospitalization)
  Sender: FDA-Public Use
  Company Number: PHEH2007US10513

PATIENT
  Sex: Female

DRUGS (3)
  1. AREDIA [Suspect]
     Dates: start: 20070517
  2. DILAUDID [Concomitant]
  3. FEXOFENADINE [Concomitant]
     Dosage: 180 MG, BID
     Route: 048

REACTIONS (5)
  - AUTONOMIC NEUROPATHY [None]
  - CHEST PAIN [None]
  - HYPERSENSITIVITY [None]
  - PNEUMONIA [None]
  - PYREXIA [None]
